FAERS Safety Report 5381256-8 (Version None)
Quarter: 2007Q3

REPORT INFORMATION
  Report Type: 
  Country: None (occurrence: None)
  Receive Date: 20070706
  Receipt Date: 20070629
  Transmission Date: 20080115
  Serious: Yes (Hospitalization)
  Sender: FDA-Public Use
  Company Number: JP-ABBOTT-07P-087-0373093-00

PATIENT
  Age: 32 Year
  Sex: Male

DRUGS (2)
  1. CEFZON [Suspect]
     Indication: UPPER RESPIRATORY TRACT INFLAMMATION
     Route: 048
     Dates: start: 20070625, end: 20070625
  2. CARBOCISTEINE [Concomitant]
     Indication: DRUG USE FOR UNKNOWN INDICATION
     Route: 048
     Dates: start: 20070625, end: 20070625

REACTIONS (3)
  - ANAPHYLACTIC REACTION [None]
  - FEELING COLD [None]
  - WHEEZING [None]
